FAERS Safety Report 16886499 (Version 1)
Quarter: 2019Q4

REPORT INFORMATION
  Report Type: Spontaneous
  Country: US (occurrence: US)
  Receive Date: 20191004
  Receipt Date: 20191004
  Transmission Date: 20200122
  Serious: Yes (Other)
  Sender: FDA-Public Use
  Company Number: US-PROCTER_AND_GAMBLE-GS19102917

PATIENT

DRUGS (1)
  1. PEPTO-BISMOL NOS [Suspect]
     Active Substance: BISMUTH SUBSALICYLATE OR CALCIUM CARBONATE
     Indication: DYSPEPSIA
     Route: 048

REACTIONS (3)
  - Loss of consciousness [Recovered/Resolved]
  - Product administration error [Unknown]
  - Biliary colic [Recovered/Resolved]
